FAERS Safety Report 5192106-7 (Version None)
Quarter: 2006Q4

REPORT INFORMATION
  Report Type: 
  Country: None (occurrence: None)
  Receive Date: 20061221
  Receipt Date: 20061221
  Transmission Date: 20070319
  Serious: Yes (Hospitalization)
  Sender: FDA-Public Use
  Company Number: None

PATIENT
  Age: 54 Year
  Sex: Male
  Weight: 69.8539 kg

DRUGS (1)
  1. CRESTOR [Suspect]
     Indication: BLOOD CHOLESTEROL
     Dosage: 10 MG DAILY
     Dates: start: 20041015, end: 20050317

REACTIONS (6)
  - FALL [None]
  - HAEMORRHOIDS [None]
  - ISCHAEMIC STROKE [None]
  - MALAISE [None]
  - MUSCULOSKELETAL PAIN [None]
  - PARAESTHESIA [None]
